FAERS Safety Report 20908434 (Version 4)
Quarter: 2024Q2

REPORT INFORMATION
  Report Type: Other
  Country: JP (occurrence: JP)
  Receive Date: 20220603
  Receipt Date: 20240401
  Transmission Date: 20240716
  Serious: Yes (Hospitalization)
  Sender: FDA-Public Use
  Company Number: JP-CHUGAI-2022020019AA

PATIENT
  Age: 68 Year
  Sex: Female
  Weight: 54.7 kg

DRUGS (6)
  1. TECENTRIQ [Suspect]
     Active Substance: ATEZOLIZUMAB
     Indication: Hepatocellular carcinoma
     Dosage: UNK
     Route: 041
     Dates: start: 20210615, end: 20210915
  2. AVASTIN [Suspect]
     Active Substance: BEVACIZUMAB
     Indication: Hepatocellular carcinoma
     Dosage: UNK
     Route: 041
     Dates: start: 20210615, end: 20210915
  3. VEMLIDY [Concomitant]
     Active Substance: TENOFOVIR ALAFENAMIDE FUMARATE
  4. LIVALO [Concomitant]
     Active Substance: PITAVASTATIN CALCIUM
  5. CARTEOLOL HYDROCHLORIDE LA [Concomitant]
  6. NASIVINE [Concomitant]

REACTIONS (2)
  - Immune-mediated pancreatitis [Recovered/Resolved]
  - Immune-mediated enterocolitis [Recovered/Resolved]

NARRATIVE: CASE EVENT DATE: 20210929
